FAERS Safety Report 13709715 (Version 2)
Quarter: 2017Q3

REPORT INFORMATION
  Report Type: Spontaneous
  Country: JP (occurrence: JP)
  Receive Date: 20170703
  Receipt Date: 20170817
  Transmission Date: 20171127
  Serious: Yes (Hospitalization, Other)
  Sender: FDA-Public Use
  Company Number: JP-SUN PHARMACEUTICAL INDUSTRIES LTD-2017RR-143851

PATIENT
  Age: 43 Year
  Sex: Male

DRUGS (7)
  1. DESMOPRESSIN [Concomitant]
     Active Substance: DESMOPRESSIN
     Indication: HYPOPITUITARISM
     Dosage: 5  ?G IN THE MORNING
     Route: 065
  2. DESMOPRESSIN [Concomitant]
     Active Substance: DESMOPRESSIN
     Dosage: 7.5 ?G, IN THE EVENING
     Route: 065
  3. OCTREOTIDE LONG-ACTING RELEASE [Suspect]
     Active Substance: OCTREOTIDE ACETATE
     Indication: GROWTH HORMONE-PRODUCING PITUITARY TUMOUR
     Dosage: 100 UG
     Route: 058
  4. LEVOTHYROXINE. [Concomitant]
     Active Substance: LEVOTHYROXINE
     Indication: HYPOPITUITARISM
     Dosage: 50 UG , DAILY
     Route: 065
  5. HYDROCORTISONE. [Concomitant]
     Active Substance: HYDROCORTISONE
     Dosage: 15 MG, DAILY, IN THE MORNING
     Route: 065
  6. OCTREOTIDE LONG-ACTING RELEASE [Suspect]
     Active Substance: OCTREOTIDE ACETATE
     Indication: GROWTH HORMONE-PRODUCING PITUITARY TUMOUR
     Dosage: 20 MG, MONTHLY, LONG-ACTING RELEASE
     Route: 065
  7. HYDROCORTISONE. [Concomitant]
     Active Substance: HYDROCORTISONE
     Indication: HYPOPITUITARISM
     Dosage: 5 MG, DAILY, IN THE EVENING
     Route: 065

REACTIONS (3)
  - Diabetes insipidus [Recovered/Resolved]
  - Hyperglycaemia [Unknown]
  - Diabetic ketoacidosis [Unknown]
